FAERS Safety Report 9386454 (Version 2)
Quarter: 2013Q3

REPORT INFORMATION
  Report Type: Report from Study
  Country: PL (occurrence: PL)
  Receive Date: 20130708
  Receipt Date: 20130902
  Transmission Date: 20140515
  Serious: Yes (Hospitalization, Other)
  Sender: FDA-Public Use
  Company Number: PL-BIOGENIDEC-2013BI057112

PATIENT
  Age: 55 Year
  Sex: Female
  Weight: 61 kg

DRUGS (14)
  1. CATAFLAM [Concomitant]
     Route: 048
     Dates: start: 20111129, end: 20130130
  2. OLFEN [Concomitant]
     Route: 048
     Dates: start: 20111129, end: 20130215
  3. XYLOCAINE [Concomitant]
     Route: 061
     Dates: start: 20111114, end: 20111114
  4. XYLOCAINE [Concomitant]
     Route: 061
     Dates: start: 20111128, end: 20111128
  5. SURGAM [Concomitant]
     Route: 048
     Dates: start: 20120725, end: 20130215
  6. SUPLASYN [Concomitant]
     Route: 061
     Dates: start: 20130724, end: 20130724
  7. SUPLASYN [Concomitant]
     Route: 061
     Dates: start: 20121017, end: 20121017
  8. SUPLASYN [Concomitant]
     Route: 061
     Dates: start: 20121107, end: 20121107
  9. BIOFENAC [Concomitant]
     Route: 048
     Dates: start: 20120905, end: 20121016
  10. DICLOFENAC [Concomitant]
     Route: 048
     Dates: start: 20121017, end: 20121116
  11. BG00012 [Suspect]
     Indication: MULTIPLE SCLEROSIS
     Route: 048
     Dates: start: 20101213
  12. AULIN [Concomitant]
     Indication: OSTEOARTHRITIS
     Route: 048
     Dates: start: 20130216, end: 20130507
  13. KATADOLON [Concomitant]
     Route: 048
     Dates: start: 20111114, end: 20111128
  14. FEBROFEN [Concomitant]
     Route: 048
     Dates: start: 20111114, end: 20111128

REACTIONS (1)
  - Osteoarthritis [Recovered/Resolved]
